FAERS Safety Report 18168530 (Version 1)
Quarter: 2020Q3

REPORT INFORMATION
  Report Type: Spontaneous
  Country: NL (occurrence: NL)
  Receive Date: 20200819
  Receipt Date: 20200819
  Transmission Date: 20201103
  Serious: Yes (Other)
  Sender: FDA-Public Use
  Company Number: NL-SAMSUNG BIOEPIS-SB-2020-25196

PATIENT
  Sex: Female
  Weight: 84 kg

DRUGS (3)
  1. FLIXABI [Suspect]
     Active Substance: INFLIXIMAB
     Indication: CARDIAC SARCOIDOSIS
     Dosage: 400MG ONCE EVERY 4 WEEKS, INFUSION POWDER/INFPDR BOTTLE
     Route: 065
     Dates: start: 20200401, end: 20200410
  2. PREDNISOLON [Concomitant]
     Active Substance: PREDNISOLONE
     Indication: PRODUCT USED FOR UNKNOWN INDICATION
     Route: 065
  3. BISOPROLOL [Concomitant]
     Active Substance: BISOPROLOL
     Indication: PRODUCT USED FOR UNKNOWN INDICATION
     Route: 065

REACTIONS (2)
  - Transient ischaemic attack [Recovered/Resolved]
  - Off label use [Unknown]
